FAERS Safety Report 18233852 (Version 1)
Quarter: 2020Q3

REPORT INFORMATION
  Report Type: Spontaneous
  Country: US (occurrence: US)
  Receive Date: 20200904
  Receipt Date: 20200904
  Transmission Date: 20201103
  Serious: Yes (Hospitalization, Other)
  Sender: FDA-Public Use
  Company Number: US-PURDUE-USA-2020-0164344

PATIENT
  Sex: Male

DRUGS (1)
  1. OXYCONTIN [Suspect]
     Active Substance: OXYCODONE HYDROCHLORIDE
     Indication: PAIN
     Dosage: UNKNOWN DOSE
     Route: 048

REACTIONS (7)
  - Drug dependence [Unknown]
  - Spinal cord neoplasm [Unknown]
  - Anxiety [Not Recovered/Not Resolved]
  - Arthrodesis [Unknown]
  - Depression [Not Recovered/Not Resolved]
  - Intervertebral disc protrusion [Unknown]
  - Cervical radiculopathy [Unknown]

NARRATIVE: CASE EVENT DATE: 20170913
